FAERS Safety Report 14075340 (Version 1)
Quarter: 2017Q4

REPORT INFORMATION
  Report Type: Spontaneous
  Country: HR (occurrence: HR)
  Receive Date: 20171011
  Receipt Date: 20171011
  Transmission Date: 20180321
  Serious: Yes (Other)
  Sender: FDA-Public Use
  Company Number: HR-BAYER-2017-189622

PATIENT
  Age: 76 Year
  Sex: Male

DRUGS (2)
  1. STATIN [Concomitant]
     Active Substance: UNSPECIFIED INGREDIENT
  2. ASPIRIN PROTECT 100 MG [Suspect]
     Active Substance: ASPIRIN

REACTIONS (3)
  - Atrial fibrillation [None]
  - Pain in extremity [None]
  - Palpitations [None]
